FAERS Safety Report 5888896-8 (Version None)
Quarter: 2008Q3

REPORT INFORMATION
  Report Type: 
  Country: None (occurrence: None)
  Receive Date: 20080919
  Receipt Date: 20080911
  Transmission Date: 20090109
  Serious: Yes (Hospitalization, Other)
  Sender: FDA-Public Use
  Company Number: PHHY2008IE19889

PATIENT
  Sex: Male

DRUGS (6)
  1. CLOZARIL [Suspect]
     Indication: SCHIZOPHRENIA
     Dosage: UNK
     Dates: start: 20070719, end: 20080819
  2. CLOZARIL [Suspect]
     Dosage: 400 MG/DAY
  3. CYMBALTA [Concomitant]
     Indication: DEPRESSION
     Dosage: 60 MG/DAY
     Dates: start: 20071106
  4. PRIADEL [Concomitant]
     Dosage: 400 MG/DAY
     Route: 048
     Dates: start: 20071106
  5. PROTHIADEN [Concomitant]
     Dosage: 150 MG/DAY
     Dates: start: 20071106
  6. DIAZEPAM [Concomitant]
     Dosage: 2 MG/DAY
     Dates: start: 20071106

REACTIONS (6)
  - DEPRESSION [None]
  - HYPERHIDROSIS [None]
  - NIGHTMARE [None]
  - SELF-INJURIOUS IDEATION [None]
  - TREATMENT NONCOMPLIANCE [None]
  - TREMOR [None]
